FAERS Safety Report 9144297 (Version 1)
Quarter: 2013Q1

REPORT INFORMATION
  Report Type: Spontaneous
  Country: ES (occurrence: ES)
  Receive Date: 20130306
  Receipt Date: 20130306
  Transmission Date: 20140127
  Serious: Yes (Hospitalization)
  Sender: FDA-Public Use
  Company Number: ES-ABBOTT-13P-144-1055721-00

PATIENT
  Age: 39 Year
  Sex: Female

DRUGS (3)
  1. KALETRA TABLETS 200/50 [Suspect]
     Indication: HIV INFECTION
     Route: 048
     Dates: start: 20081103, end: 20121210
  2. HEMICRANEAL [Interacting]
     Indication: HEADACHE
     Route: 048
     Dates: start: 20121205, end: 20121205
  3. MARAVIROC [Concomitant]
     Indication: HIV INFECTION
     Dates: start: 20080813, end: 20121210

REACTIONS (2)
  - Peripheral ischaemia [Recovered/Resolved]
  - Arterial spasm [Recovered/Resolved]
